FAERS Safety Report 18413008 (Version 2)
Quarter: 2020Q4

REPORT INFORMATION
  Report Type: Report from Study
  Country: US (occurrence: US)
  Receive Date: 20201021
  Receipt Date: 20201030
  Transmission Date: 20210114
  Serious: Yes (Hospitalization, Other)
  Sender: FDA-Public Use
  Company Number: US-BRISTOL-MYERS SQUIBB COMPANY-BMS-2020-086431

PATIENT
  Age: 58 Year
  Sex: Male
  Weight: 55.79 kg

DRUGS (6)
  1. CARBOPLATIN. [Suspect]
     Active Substance: CARBOPLATIN
     Dosage: AUC 4.5
     Route: 065
     Dates: start: 20201016
  2. CARBOPLATIN. [Suspect]
     Active Substance: CARBOPLATIN
     Indication: HEAD AND NECK CANCER
     Dosage: AUC 5
     Route: 065
     Dates: start: 20200925, end: 20201009
  3. PACLITAXEL. [Suspect]
     Active Substance: PACLITAXEL
     Dosage: 75 MILLIGRAM/SQ. METER
     Route: 065
     Dates: start: 20201009
  4. NIVOLUMAB [Suspect]
     Active Substance: NIVOLUMAB
     Indication: HEAD AND NECK CANCER
     Dosage: 360 MILLIGRAM
     Route: 065
     Dates: start: 20200925
  5. PACLITAXEL. [Suspect]
     Active Substance: PACLITAXEL
     Indication: HEAD AND NECK CANCER
     Dosage: 100 MILLIGRAM/SQ. METER
     Route: 065
     Dates: start: 20200925, end: 20201002
  6. PACLITAXEL. [Suspect]
     Active Substance: PACLITAXEL
     Dosage: 50 MILLIGRAM/SQ. METER
     Route: 065
     Dates: start: 20201023

REACTIONS (2)
  - Febrile neutropenia [Recovered/Resolved]
  - Gastric disorder [Unknown]

NARRATIVE: CASE EVENT DATE: 20201014
